FAERS Safety Report 5479778-4 (Version None)
Quarter: 2007Q4

REPORT INFORMATION
  Report Type: 
  Country: None (occurrence: None)
  Receive Date: 20071008
  Receipt Date: 20071004
  Transmission Date: 20080405
  Serious: Yes (Death)
  Sender: FDA-Public Use
  Company Number: US-SANOFI-SYNTHELABO-F01200701252

PATIENT
  Age: 66 Year
  Sex: Male

DRUGS (4)
  1. BEVACIZUMAB [Suspect]
     Route: 042
     Dates: start: 20070711, end: 20070711
  2. FLUOROURACIL [Suspect]
     Dosage: 400 MG/M2 IV BOLUS ON D1 THEN 2.4 G/M2 AS CONTINUOUS INFUSION OVER 46 H
     Route: 042
     Dates: start: 20070712, end: 20070713
  3. LEUCOVORIN [Suspect]
     Route: 042
     Dates: start: 20070711, end: 20070711
  4. OXALIPLATIN [Suspect]
     Indication: RECTAL CANCER
     Route: 042
     Dates: start: 20070711, end: 20070711

REACTIONS (3)
  - ANAL FISTULA [None]
  - LOWER GASTROINTESTINAL HAEMORRHAGE [None]
  - RECTAL ABSCESS [None]
